FAERS Safety Report 10172013 (Version 1)
Quarter: 2014Q2

REPORT INFORMATION
  Report Type: Spontaneous
  Country: BR (occurrence: BR)
  Receive Date: 20140515
  Receipt Date: 20140515
  Transmission Date: 20141212
  Serious: Yes (Other)
  Sender: FDA-Public Use
  Company Number: BR-PFIZER INC-2014130913

PATIENT
  Age: 42 Year
  Sex: Male
  Weight: 74 kg

DRUGS (4)
  1. ATENOLOL [Suspect]
     Dosage: TWO TIMES A DAY
     Route: 048
     Dates: start: 201212
  2. LOSARTAN POTASSIUM [Concomitant]
     Dosage: UNK
     Route: 048
     Dates: start: 201212
  3. ASA [Concomitant]
     Dosage: UNK
     Route: 048
     Dates: start: 201212
  4. FENOFIBRATE [Concomitant]
     Dosage: UNK
     Route: 048
     Dates: start: 201212

REACTIONS (1)
  - Coronary artery occlusion [Not Recovered/Not Resolved]
